FAERS Safety Report 4282979-4 (Version None)
Quarter: 2004Q1

REPORT INFORMATION
  Report Type: 
  Country: None (occurrence: None)
  Receive Date: 20040130
  Receipt Date: 20040122
  Transmission Date: 20041129
  Serious: Yes (Hospitalization, Other)
  Sender: FDA-Public Use
  Company Number: PHEH2004US01147

PATIENT
  Age: 77 Year
  Sex: Female

DRUGS (15)
  1. MIACALCIN [Suspect]
     Indication: OSTEOPOROSIS
     Dosage: 200 IU ALTERNATE NOSTRIL DAILY
     Dates: start: 20030901, end: 20031003
  2. ACETYLSALICYLIC ACID SRT [Concomitant]
  3. TOPROL-XL [Concomitant]
  4. MAXZIDE [Concomitant]
  5. CELEXA [Concomitant]
  6. LOTENSIN [Concomitant]
  7. CARTIA XT [Concomitant]
  8. COUMADIN [Concomitant]
  9. ACIPHEX [Concomitant]
  10. ATIVAN [Concomitant]
  11. TIMOPTIC-XE [Concomitant]
  12. AZOPT [Concomitant]
  13. LUMIGAN [Concomitant]
  14. CENTRUM [Concomitant]
  15. FISH OIL [Concomitant]

REACTIONS (8)
  - CARDIAC FAILURE CONGESTIVE [None]
  - CEREBRAL HAEMATOMA [None]
  - EPISTAXIS [None]
  - HEADACHE [None]
  - HEART RATE DECREASED [None]
  - MUSCULOSKELETAL STIFFNESS [None]
  - NECK PAIN [None]
  - PULMONARY OEDEMA [None]
